FAERS Safety Report 6885891-7 (Version None)
Quarter: 2010Q3

REPORT INFORMATION
  Report Type: 
  Country: None (occurrence: None)
  Receive Date: 20100729
  Receipt Date: 20080602
  Transmission Date: 20110219
  Serious: Yes (Other)
  Sender: FDA-Public Use
  Company Number: US-PFIZER INC-2008027493

PATIENT
  Age: 51 Year
  Sex: Female

DRUGS (3)
  1. CELEBREX [Suspect]
  2. AVAPRO [Suspect]
  3. SIMVASTATIN [Suspect]

REACTIONS (3)
  - LABOUR COMPLICATION [None]
  - METRORRHAGIA [None]
  - REPRODUCTIVE TRACT DISORDER [None]
